FAERS Safety Report 5008274-3 (Version None)
Quarter: 2006Q2

REPORT INFORMATION
  Report Type: 
  Country: None (occurrence: None)
  Receive Date: 20060523
  Receipt Date: 20050906
  Transmission Date: 20061013
  Serious: No
  Sender: FDA-Public Use
  Company Number: US-GLAXOSMITHKLINE-A0573116A

PATIENT
  Age: 25 Year
  Sex: Male

DRUGS (3)
  1. FLOLAN [Suspect]
     Dosage: 65.5MCG CONTINUOUS
     Route: 042
     Dates: start: 20030101
  2. DIGOXIN [Concomitant]
  3. DIURETICS [Concomitant]

REACTIONS (1)
  - ERECTILE DYSFUNCTION [None]
